FAERS Safety Report 15597783 (Version 11)
Quarter: 2021Q3

REPORT INFORMATION
  Report Type: Spontaneous
  Country: US (occurrence: US)
  Receive Date: 20181108
  Receipt Date: 20210811
  Transmission Date: 20211014
  Serious: Yes (Other)
  Sender: FDA-Public Use
  Company Number: US-PFIZER INC-2018391221

PATIENT
  Age: 69 Year
  Sex: Female
  Weight: 95 kg

DRUGS (19)
  1. LAMICTAL [Concomitant]
     Active Substance: LAMOTRIGINE
     Dosage: UNK
     Dates: start: 2015
  2. DULOXETINE. [Concomitant]
     Active Substance: DULOXETINE
     Dosage: 20 MG
     Dates: start: 2018, end: 2018
  3. LYRICA [Suspect]
     Active Substance: PREGABALIN
     Indication: NEUROPATHY PERIPHERAL
     Dosage: 200 MG, TWICE A DAY
     Route: 048
  4. LOVASTATIN. [Concomitant]
     Active Substance: LOVASTATIN
     Dosage: UNK
     Dates: start: 2018
  5. DULOXETINE. [Concomitant]
     Active Substance: DULOXETINE
     Dosage: UNK
     Dates: start: 201810
  6. LYRICA [Suspect]
     Active Substance: PREGABALIN
     Indication: NEURALGIA
  7. LYRICA [Suspect]
     Active Substance: PREGABALIN
     Indication: LUMBAR RADICULOPATHY
  8. LAMICTAL [Concomitant]
     Active Substance: LAMOTRIGINE
     Dosage: 150 MG
  9. VRAYLAR [Concomitant]
     Active Substance: CARIPRAZINE
     Dosage: UNK
     Dates: start: 201811
  10. LYRICA [Suspect]
     Active Substance: PREGABALIN
     Indication: HYPOAESTHESIA
     Dosage: 150 MG, TWICE A DAY
     Route: 048
  11. LAMICTAL [Concomitant]
     Active Substance: LAMOTRIGINE
     Dosage: 100 MG
  12. ASPIRIN [ACETYLSALICYLIC ACID] [Concomitant]
     Active Substance: ASPIRIN
     Dosage: 81 MG
  13. LYRICA [Suspect]
     Active Substance: PREGABALIN
     Indication: INTERVERTEBRAL DISC DISPLACEMENT
  14. PREGABALIN. [Suspect]
     Active Substance: PREGABALIN
     Indication: BACK PAIN
     Dosage: 150 MG, TWICE A DAY
     Route: 048
     Dates: start: 20200807, end: 20200808
  15. CELEBREX [Concomitant]
     Active Substance: CELECOXIB
     Dosage: UNK
     Dates: start: 2016
  16. VRAYLAR [Concomitant]
     Active Substance: CARIPRAZINE
     Dosage: UNK
     Dates: start: 2018, end: 2018
  17. LYRICA [Suspect]
     Active Substance: PREGABALIN
     Indication: NERVE INJURY
     Dosage: 150 MG, TWICE A DAY
     Route: 048
     Dates: start: 2015
  18. OMEPRAZOLE. [Concomitant]
     Active Substance: OMEPRAZOLE
     Dosage: UNK
  19. CELEBREX [Concomitant]
     Active Substance: CELECOXIB
     Indication: ARTHRITIS
     Dosage: 200 MG, ONCE A DAY
     Dates: start: 2012

REACTIONS (8)
  - Nephrolithiasis [Unknown]
  - Fatigue [Recovered/Resolved]
  - Chest pain [Recovered/Resolved]
  - Pruritus [Recovered/Resolved]
  - Drug ineffective [Unknown]
  - Drug intolerance [Recovered/Resolved]
  - Product dispensing error [Unknown]
  - Somnolence [Recovered/Resolved]

NARRATIVE: CASE EVENT DATE: 20200807
